FAERS Safety Report 13901783 (Version 1)
Quarter: 2017Q3

REPORT INFORMATION
  Report Type: Report from Study
  Country: CN (occurrence: CN)
  Receive Date: 20170824
  Receipt Date: 20170824
  Transmission Date: 20171127
  Serious: Yes (Hospitalization)
  Sender: FDA-Public Use
  Company Number: CN-ASTRAZENECA-2017SE85328

PATIENT
  Age: 21181 Day
  Sex: Male

DRUGS (14)
  1. POTASSIUM CHLORIDE. [Concomitant]
     Active Substance: POTASSIUM CHLORIDE
     Indication: CORONARY ARTERY DISEASE
     Dosage: 5.0 ML
     Route: 042
     Dates: start: 20161031, end: 20161101
  2. TICAGRELOR. [Concomitant]
     Active Substance: TICAGRELOR
     Indication: CORONARY ARTERY DISEASE
     Dosage: 180.0 MG
     Route: 048
     Dates: start: 20161031
  3. CHINESE TRADITIONAL MEDICINE NOS [Concomitant]
     Active Substance: UNSPECIFIED INGREDIENT
     Indication: CORONARY ARTERY DISEASE
     Dosage: 40.0 MG
     Route: 048
  4. ROSUVASTATIN. [Concomitant]
     Active Substance: ROSUVASTATIN
     Indication: CORONARY ARTERY DISEASE
     Dosage: 10.0 MG
     Route: 048
  5. MAGNESIUM SULFATE. [Concomitant]
     Active Substance: MAGNESIUM SULFATE
     Indication: CORONARY ARTERY DISEASE
     Dosage: 5.0 ML
     Route: 042
     Dates: start: 20161031, end: 20161101
  6. METFORMIN [Concomitant]
     Active Substance: METFORMIN HYDROCHLORIDE
     Indication: DIABETES MELLITUS
     Dosage: 500.0 MG
     Route: 048
  7. REGULAR ILETIN [Concomitant]
     Indication: DIABETES MELLITUS
     Dosage: 4.0 IU
     Route: 042
     Dates: start: 20161031, end: 20161101
  8. CHINESE TRADITIONAL MEDICINE NOS [Concomitant]
     Active Substance: UNSPECIFIED INGREDIENT
     Indication: CORONARY ARTERY DISEASE
     Dosage: 20.0 ML
     Route: 042
     Dates: start: 20161031, end: 20161101
  9. ASPIRIN. [Concomitant]
     Active Substance: ASPIRIN
     Indication: CORONARY ARTERY DISEASE
     Dosage: 0.1 G
     Route: 048
  10. HEPARIN [Concomitant]
     Active Substance: HEPARIN SODIUM
     Indication: CORONARY ARTERY DISEASE
     Dosage: 1.0 KIU
     Route: 058
     Dates: start: 20161031, end: 20161102
  11. TICAGRELOR. [Suspect]
     Active Substance: TICAGRELOR
     Indication: CARDIOVASCULAR EVENT PROPHYLAXIS
     Route: 048
     Dates: start: 20160129, end: 20161030
  12. CAPTOPRIL. [Concomitant]
     Active Substance: CAPTOPRIL
     Indication: HYPERTENSION
     Dosage: 25.0 G
     Route: 048
  13. HERBESSER [Concomitant]
     Active Substance: DILTIAZEM HYDROCHLORIDE
     Indication: CORONARY ARTERY DISEASE
     Dosage: 90.0 G
     Route: 048
  14. CHINESE TRADITIONAL MEDICINE NOS [Concomitant]
     Active Substance: UNSPECIFIED INGREDIENT
     Indication: DIABETES MELLITUS
     Dosage: 15.0 PILL

REACTIONS (1)
  - Angina unstable [Recovered/Resolved]

NARRATIVE: CASE EVENT DATE: 20161108
